FAERS Safety Report 25418108 (Version 2)
Quarter: 2025Q3

REPORT INFORMATION
  Report Type: Spontaneous
  Country: PR (occurrence: PR)
  Receive Date: 20250610
  Receipt Date: 20250710
  Transmission Date: 20251021
  Serious: No
  Sender: PFIZER
  Company Number: PR-PFIZER INC-202500116175

PATIENT
  Age: 10 Year
  Sex: Male

DRUGS (1)
  1. GENOTROPIN [Suspect]
     Active Substance: SOMATROPIN

REACTIONS (1)
  - Drug ineffective [Unknown]
